FAERS Safety Report 5817534-5 (Version None)
Quarter: 2008Q3

REPORT INFORMATION
  Report Type: 
  Country: None (occurrence: None)
  Receive Date: 20080722
  Receipt Date: 20080711
  Transmission Date: 20090109
  Serious: Yes (Hospitalization, Disabling, Other)
  Sender: FDA-Public Use
  Company Number: US-MERCK-0705USA01416

PATIENT
  Age: 70 Year
  Sex: Female
  Weight: 48 kg

DRUGS (8)
  1. FOSAMAX [Suspect]
     Indication: OSTEOPOROSIS
     Route: 048
     Dates: start: 19960101, end: 20050201
  2. HORMONES (UNSPECIFIED) [Concomitant]
     Route: 065
     Dates: start: 19930101, end: 19980101
  3. [THERAPY UNSPECIFIED] [Concomitant]
     Indication: HYPERTENSION
     Route: 065
     Dates: start: 19890101
  4. CORTICOSTEROIDS (UNSPECIFIED) [Concomitant]
     Route: 065
     Dates: start: 19980101, end: 20071101
  5. COUMADIN [Concomitant]
     Indication: ANTICOAGULANT THERAPY
     Route: 065
     Dates: start: 19890101
  6. NORVASC [Concomitant]
     Indication: HYPERTENSION
     Route: 065
     Dates: start: 19980101
  7. DIPYRIDAMOLE [Concomitant]
     Route: 065
     Dates: start: 19890101
  8. ACTONEL [Suspect]
     Indication: OSTEOPOROSIS
     Route: 048
     Dates: start: 20050315, end: 20050808

REACTIONS (66)
  - ACQUIRED OESOPHAGEAL WEB [None]
  - ADVERSE DRUG REACTION [None]
  - ANAEMIA [None]
  - ANAEMIA MACROCYTIC [None]
  - ANGINA PECTORIS [None]
  - AORTIC ANEURYSM [None]
  - ARTHROPATHY [None]
  - ASTHENIA [None]
  - ATROPHY [None]
  - AZOTAEMIA [None]
  - BLINDNESS [None]
  - CAROTID ARTERY STENOSIS [None]
  - CELLULITIS [None]
  - CEREBROVASCULAR DISORDER [None]
  - CLAVICLE FRACTURE [None]
  - CONFUSIONAL STATE [None]
  - CONTUSION [None]
  - DEHYDRATION [None]
  - DEPRESSION [None]
  - DIARRHOEA [None]
  - DIVERTICULUM [None]
  - DRY MOUTH [None]
  - DYSPHAGIA [None]
  - DYSPNOEA [None]
  - EATING DISORDER [None]
  - ENDOPHTHALMITIS [None]
  - EROSIVE OESOPHAGITIS [None]
  - EUSTACHIAN TUBE DYSFUNCTION [None]
  - EXCORIATION [None]
  - FACIAL PAIN [None]
  - FALL [None]
  - FATIGUE [None]
  - FEELING ABNORMAL [None]
  - GASTROINTESTINAL DISORDER [None]
  - GENERALISED ANXIETY DISORDER [None]
  - GINGIVAL DISORDER [None]
  - HAEMATOMA [None]
  - HYPOTENSION [None]
  - HYPOTHYROIDISM [None]
  - INFECTION [None]
  - IRON DEFICIENCY [None]
  - JAW FRACTURE [None]
  - LEFT VENTRICULAR HYPERTROPHY [None]
  - MASTICATION DISORDER [None]
  - MOUTH ULCERATION [None]
  - OSTEOMALACIA [None]
  - OSTEOMYELITIS [None]
  - OSTEONECROSIS [None]
  - PAIN [None]
  - PAIN IN JAW [None]
  - PNEUMONIA [None]
  - PNEUMONIA ASPIRATION [None]
  - RENAL FAILURE ACUTE [None]
  - RENAL TUBULAR NECROSIS [None]
  - RESORPTION BONE INCREASED [None]
  - RESPIRATORY ARREST [None]
  - RETROPERITONEAL HAEMORRHAGE [None]
  - SPEECH DISORDER [None]
  - SWELLING [None]
  - SWELLING FACE [None]
  - TEMPOROMANDIBULAR JOINT SYNDROME [None]
  - TRANSIENT ISCHAEMIC ATTACK [None]
  - UPPER RESPIRATORY TRACT INFECTION [None]
  - URINARY TRACT INFECTION [None]
  - URINARY TRACT INFECTION ENTEROCOCCAL [None]
  - WEIGHT DECREASED [None]
